FAERS Safety Report 8116998-4 (Version None)
Quarter: 2012Q1

REPORT INFORMATION
  Report Type: 
  Country: None (occurrence: None)
  Receive Date: 20120206
  Receipt Date: 20120125
  Transmission Date: 20120608
  Serious: Yes (Other)
  Sender: FDA-Public Use
  Company Number: GB-ROCHE-1030021

PATIENT
  Sex: Male

DRUGS (7)
  1. XENICAL [Suspect]
     Indication: WEIGHT DECREASED
     Route: 048
  2. SIMVASTATIN [Concomitant]
     Dosage: EVERY NIGHT
     Route: 048
  3. BENDROFLUMETHIAZIDE [Concomitant]
     Indication: HYPERTENSION
     Dosage: OD
     Route: 048
  4. AMLODIPINE [Concomitant]
     Indication: HYPERTENSION
     Dosage: OD
     Route: 048
  5. FENOFIBRATE [Concomitant]
     Indication: HYPERLIPIDAEMIA
     Dosage: OD
     Route: 048
  6. ATENOLOL [Concomitant]
     Indication: HYPERTENSION
     Dosage: OD
     Route: 048
  7. OMEPRAZOLE [Concomitant]
     Dosage: 1-2 CAPSULES
     Route: 048

REACTIONS (1)
  - RECTAL HAEMORRHAGE [None]
